FAERS Safety Report 11473889 (Version 1)
Quarter: 2015Q3

REPORT INFORMATION
  Report Type: Spontaneous
  Country: US (occurrence: None)
  Receive Date: 20150902
  Receipt Date: 20150902
  Transmission Date: 20151125
  Serious: Yes (Hospitalization)
  Sender: FDA-Public Use
  Company Number: A-NJ2015-112491

PATIENT
  Age: 61 Year
  Sex: Female

DRUGS (3)
  1. TYVASO [Concomitant]
     Active Substance: TREPROSTINIL
  2. REVATIO (SILDENAFIL CITRATE) [Concomitant]
  3. VELETRI [Suspect]
     Active Substance: EPOPROSTENOL
     Indication: PULMONARY HYPERTENSION
     Dosage: PER MIN
     Route: 042
     Dates: start: 20140601

REACTIONS (4)
  - Pulmonary arterial hypertension [None]
  - Fluid retention [None]
  - Pain in extremity [None]
  - Peripheral swelling [None]
